FAERS Safety Report 17115053 (Version 1)
Quarter: 2019Q4

REPORT INFORMATION
  Report Type: Spontaneous
  Country: GB (occurrence: GB)
  Receive Date: 20191205
  Receipt Date: 20191205
  Transmission Date: 20200122
  Serious: Yes (Other)
  Sender: FDA-Public Use
  Company Number: GB-TEVA-2019-GB-1146836

PATIENT
  Age: 73 Year
  Sex: Female
  Weight: 77 kg

DRUGS (11)
  1. MIRTAZAPINE. [Suspect]
     Active Substance: MIRTAZAPINE
     Dosage: AT NIGHT, 15 MG PER DAY
     Dates: start: 20191007
  2. LANTUS [Concomitant]
     Active Substance: INSULIN GLARGINE
     Dosage: AS DIRECTED
     Dates: start: 20180102
  3. CETIRIZINE [Concomitant]
     Active Substance: CETIRIZINE HYDROCHLORIDE
     Dosage: 1 DOSAGE FORMS
     Dates: start: 20180102
  4. LEVOTHYROXINE. [Concomitant]
     Active Substance: LEVOTHYROXINE
     Dosage: 1 DOSAGE FORMS
     Dates: start: 20180102
  5. CANDESARTAN. [Concomitant]
     Active Substance: CANDESARTAN
     Dosage: INSTEAD OF RAMIPRIL, 1 DOSAGE FORMS
     Dates: start: 20190204
  6. HUMALOG [Concomitant]
     Active Substance: INSULIN LISPRO
     Dosage: AS DIRECTED
     Dates: start: 20180102
  7. SIMVASTATIN. [Concomitant]
     Active Substance: SIMVASTATIN
     Dosage: AT NIGHT, 1 DOSAGE FORMS
     Dates: start: 20180102
  8. ZOPICLONE [Concomitant]
     Active Substance: ZOPICLONE
     Dosage: AT NIGHT UP TO 3 TIMES PER WEEK, 1 DOSAGE FORMS
     Dates: start: 20191024
  9. FUROSEMIDE. [Concomitant]
     Active Substance: FUROSEMIDE
     Dosage: EACH MORNING, 1 DOSAGE FORMS
     Dates: start: 20180216
  10. DOSULEPIN HYDROCHLORIDE [Concomitant]
     Active Substance: DOTHIEPIN HYDROCHLORIDE
     Indication: INSOMNIA
     Dosage: ONE OR TWO AT NIGHT
     Dates: start: 20180102, end: 20191007
  11. HYDROCORTISONE. [Concomitant]
     Active Substance: HYDROCORTISONE
     Indication: PERIPHERAL SWELLING
     Dosage: 2 DOSAGE FORMS
     Dates: start: 20190821, end: 20190822

REACTIONS (1)
  - Hypoglycaemia [Recovered/Resolved]
